FAERS Safety Report 15612144 (Version 1)
Quarter: 2018Q4

REPORT INFORMATION
  Report Type: Spontaneous
  Country: US (occurrence: US)
  Receive Date: 20181113
  Receipt Date: 20181113
  Transmission Date: 20190205
  Serious: No
  Sender: FDA-Public Use
  Company Number: US-GLAXOSMITHKLINE-US2018199367

PATIENT
  Age: 95 Year
  Sex: Female

DRUGS (1)
  1. INCRUSE ELLIPTA [Suspect]
     Active Substance: UMECLIDINIUM BROMIDE
     Indication: INCREASED BRONCHIAL SECRETION
     Dosage: 1 PUFF(S), SINGLE
     Route: 055
     Dates: start: 20181030, end: 20181031

REACTIONS (5)
  - Productive cough [Unknown]
  - Intentional dose omission [Unknown]
  - Product use in unapproved indication [Unknown]
  - Off label use [Unknown]
  - Sputum discoloured [Unknown]

NARRATIVE: CASE EVENT DATE: 201810
